FAERS Safety Report 24765785 (Version 1)
Quarter: 2024Q4

REPORT INFORMATION
  Report Type: Report from Study
  Country: US (occurrence: US)
  Receive Date: 20241223
  Receipt Date: 20241223
  Transmission Date: 20250114
  Serious: Yes (Hospitalization, Other)
  Sender: SANOFI AVENTIS
  Company Number: US-SA-SAC20231009001359

PATIENT
  Age: 69 Year
  Sex: Female
  Weight: 92.08 kg

DRUGS (1)
  1. DUPILUMAB [Suspect]
     Active Substance: DUPILUMAB
     Indication: Asthma
     Dosage: 300 MG, QOW
     Route: 058
     Dates: start: 20231020

REACTIONS (6)
  - Pneumonia [Recovering/Resolving]
  - Cystitis [Recovering/Resolving]
  - Urinary tract infection [Recovering/Resolving]
  - Eyelid margin crusting [Recovering/Resolving]
  - Eye discharge [Recovering/Resolving]
  - Product prescribing error [Unknown]

NARRATIVE: CASE EVENT DATE: 20230101
